FAERS Safety Report 6922803-1 (Version None)
Quarter: 2010Q3

REPORT INFORMATION
  Report Type: 
  Country: None (occurrence: None)
  Receive Date: 20100813
  Receipt Date: 20100803
  Transmission Date: 20110219
  Serious: Yes (Other)
  Sender: FDA-Public Use
  Company Number: ES-PFIZER INC-2010097114

PATIENT
  Sex: Female

DRUGS (1)
  1. TRANKIMAZIN [Suspect]
     Dosage: +0.5MG IN MORNING AND 2MG IN THE EVENING

REACTIONS (4)
  - DIZZINESS [None]
  - INCORRECT DOSE ADMINISTERED [None]
  - SOMNOLENCE [None]
  - SPEECH DISORDER [None]
